FAERS Safety Report 20778280 (Version 1)
Quarter: 2022Q2

REPORT INFORMATION
  Report Type: Report from Study
  Country: CA (occurrence: None)
  Receive Date: 20220503
  Receipt Date: 20220503
  Transmission Date: 20220721
  Serious: Yes (Other)
  Sender: FDA-Public Use
  Company Number: CA-PFIZER INC-202200628710

PATIENT
  Age: 64 Year
  Sex: Female
  Weight: 59 kg

DRUGS (9)
  1. METHOTREXATE [Suspect]
     Active Substance: METHOTREXATE
     Indication: Product used for unknown indication
     Route: 065
  2. ACTEMRA [Suspect]
     Active Substance: TOCILIZUMAB
     Indication: Rheumatoid arthritis
     Route: 058
  3. ACTEMRA [Suspect]
     Active Substance: TOCILIZUMAB
     Indication: Rheumatoid arthritis
     Dosage: 162 MG, 2X/WEEK
     Route: 058
  4. PREDNISONE [Suspect]
     Active Substance: PREDNISONE
     Indication: Product used for unknown indication
     Route: 065
  5. ACETAMINOPHEN [Concomitant]
     Active Substance: ACETAMINOPHEN
     Route: 065
  6. AMLODIPINE [Concomitant]
     Active Substance: AMLODIPINE BESYLATE
     Route: 065
  7. LEFLUNOMIDE [Concomitant]
     Active Substance: LEFLUNOMIDE
     Route: 065
  8. PROLIA [Concomitant]
     Active Substance: DENOSUMAB
     Route: 065
  9. ROSUVASTATIN [Concomitant]
     Active Substance: ROSUVASTATIN
     Route: 058

REACTIONS (13)
  - Drug ineffective [Not Recovered/Not Resolved]
  - Arthritis [Not Recovered/Not Resolved]
  - Back pain [Not Recovered/Not Resolved]
  - Bone density decreased [Not Recovered/Not Resolved]
  - Bone infarction [Not Recovered/Not Resolved]
  - Gastrooesophageal reflux disease [Not Recovered/Not Resolved]
  - Herpes zoster [Not Recovered/Not Resolved]
  - Joint effusion [Not Recovered/Not Resolved]
  - Lumbar radiculopathy [Not Recovered/Not Resolved]
  - Pain in extremity [Not Recovered/Not Resolved]
  - Sciatica [Not Recovered/Not Resolved]
  - Vitamin B12 deficiency [Not Recovered/Not Resolved]
  - Vitamin D deficiency [Not Recovered/Not Resolved]
